FAERS Safety Report 7574571-0 (Version None)
Quarter: 2011Q2

REPORT INFORMATION
  Report Type: 
  Country: None (occurrence: None)
  Receive Date: 20110627
  Receipt Date: 20110531
  Transmission Date: 20111010
  Serious: Yes (Hospitalization, Other)
  Sender: FDA-Public Use
  Company Number: US-BAYER-2011-018405

PATIENT
  Age: 25 Year
  Sex: Female
  Weight: 85.714 kg

DRUGS (4)
  1. DROSPIRENONE AND ETHINYL ESTRADIOL [Suspect]
     Indication: ORAL CONTRACEPTION
     Dosage: UNK UNK, QD
     Dates: start: 20090714, end: 20100201
  2. PRILOSEC [Concomitant]
     Dosage: 20 MG, UNK
  3. TYLENOL-500 [Concomitant]
     Dosage: 2 DF, PRN
     Route: 048
  4. YASMIN [Suspect]
     Indication: ORAL CONTRACEPTION
     Dosage: UNK UNK, QD
     Dates: start: 20040326, end: 20090714

REACTIONS (3)
  - CHOLECYSTITIS CHRONIC [None]
  - BILIARY DYSKINESIA [None]
  - GALLBLADDER DISORDER [None]
